FAERS Safety Report 4930057-0 (Version None)
Quarter: 2006Q1

REPORT INFORMATION
  Report Type: 
  Country: None (occurrence: None)
  Receive Date: 20060228
  Receipt Date: 20060203
  Transmission Date: 20060701
  Serious: Yes (Other)
  Sender: FDA-Public Use
  Company Number: CA200602001554

PATIENT
  Age: 11 Year
  Sex: Male

DRUGS (2)
  1. STRATTERA [Suspect]
     Dates: start: 20050501
  2. STRATTERA [Suspect]
     Dates: start: 20050601

REACTIONS (3)
  - HEAD BANGING [None]
  - INTENTIONAL SELF-INJURY [None]
  - LACERATION [None]
